FAERS Safety Report 6058208-8 (Version None)
Quarter: 2009Q1

REPORT INFORMATION
  Report Type: 
  Country: None (occurrence: None)
  Receive Date: 20090130
  Receipt Date: 20090121
  Transmission Date: 20090719
  Serious: Yes (Death)
  Sender: FDA-Public Use
  Company Number: US-JNJFOC-20090105666

PATIENT
  Sex: Male
  Weight: 180.53 kg

DRUGS (6)
  1. FENTANYL CITRATE [Suspect]
     Indication: DRUG USE FOR UNKNOWN INDICATION
     Route: 062
  2. GABAPENTIN [Concomitant]
  3. PROZAC [Concomitant]
  4. DOXEPIN HCL [Concomitant]
  5. TYLENOL [Concomitant]
  6. DEPAKOTE [Concomitant]

REACTIONS (2)
  - ARTERIOSCLEROSIS [None]
  - HYPERTENSION [None]
